FAERS Safety Report 7755059-0 (Version None)
Quarter: 2011Q3

REPORT INFORMATION
  Report Type: 
  Country: None (occurrence: None)
  Receive Date: 20110913
  Receipt Date: 20110902
  Transmission Date: 20111222
  Serious: Yes (Hospitalization)
  Sender: FDA-Public Use
  Company Number: 2011S1000997

PATIENT
  Age: 51 Year
  Sex: Male
  Weight: 80.5 kg

DRUGS (4)
  1. METFORMIN HYDROCHLORIDE [Suspect]
     Indication: DIABETES MELLITUS
     Dosage: 250 MG;TID;PO
     Route: 048
     Dates: start: 20090501, end: 20110615
  2. OLMESARTAN MEDOXOMIL [Suspect]
     Indication: HYPERTENSION
     Dosage: 10 MG;1X;PO, PO
     Route: 048
     Dates: start: 20110304, end: 20110615
  3. NORVASC [Concomitant]
  4. LIVALO [Suspect]
     Dosage: 1 MG;1X;PO
     Route: 048
     Dates: start: 20090520, end: 20110517

REACTIONS (10)
  - THYROXINE DECREASED [None]
  - ALCOHOL USE [None]
  - GAMMA-GLUTAMYLTRANSFERASE INCREASED [None]
  - RENAL IMPAIRMENT [None]
  - BLOOD THYROID STIMULATING HORMONE INCREASED [None]
  - HEPATIC FUNCTION ABNORMAL [None]
  - BLOOD CREATINE PHOSPHOKINASE INCREASED [None]
  - RHABDOMYOLYSIS [None]
  - BLOOD CREATININE INCREASED [None]
  - ALANINE AMINOTRANSFERASE INCREASED [None]
